FAERS Safety Report 10450027 (Version 2)
Quarter: 2015Q4

REPORT INFORMATION
  Report Type: Other
  Country: DK (occurrence: DK)
  Receive Date: 20140910
  Receipt Date: 20151229
  Transmission Date: 20160304
  Serious: Yes (Disabling)
  Sender: FDA-Public Use
  Company Number: DK-2014-3587

PATIENT
  Age: 80 Year
  Sex: Female

DRUGS (4)
  1. NAVELBINE [Suspect]
     Active Substance: VINORELBINE TARTRATE
     Indication: BREAST CANCER METASTATIC
     Route: 048
     Dates: start: 20131101, end: 20140429
  2. HERCEPTIN [Suspect]
     Active Substance: TRASTUZUMAB
     Dates: start: 20131101, end: 20140429
  3. PERJETA [Suspect]
     Active Substance: PERTUZUMAB
     Dates: start: 20131101, end: 20140429
  4. ELTROXIN [Concomitant]
     Active Substance: LEVOTHYROXINE
     Route: 065

REACTIONS (3)
  - Cognitive disorder [Not Recovered/Not Resolved]
  - Dementia [Not Recovered/Not Resolved]
  - Depression [Unknown]

NARRATIVE: CASE EVENT DATE: 20131201
